FAERS Safety Report 4464587-5 (Version None)
Quarter: 2004Q3

REPORT INFORMATION
  Report Type: 
  Country: None (occurrence: None)
  Receive Date: 20040929
  Receipt Date: 20040915
  Transmission Date: 20050211
  Serious: Yes (Other)
  Sender: FDA-Public Use
  Company Number: 0104-1778

PATIENT
  Age: 67 Year
  Sex: Female
  Weight: 95.2554 kg

DRUGS (5)
  1. ADVICOR [Suspect]
     Dosage: 1 TABLET(S) QPM PO
     Route: 048
     Dates: start: 20040616, end: 20040622
  2. LANTUS [Concomitant]
  3. DIOVAN [Concomitant]
  4. SYNTHROID [Concomitant]
  5. ASPIRIN [Concomitant]

REACTIONS (2)
  - MICTURITION URGENCY [None]
  - UTERINE CANCER [None]
